FAERS Safety Report 9289123 (Version 3)
Quarter: 2013Q3

REPORT INFORMATION
  Report Type: Spontaneous
  Country: US (occurrence: None)
  Receive Date: 20130509
  Receipt Date: 20130802
  Transmission Date: 20140515
  Serious: Yes (Hospitalization, Other)
  Sender: FDA-Public Use
  Company Number: ACO_35792_2013

PATIENT
  Age: 75 Year
  Sex: Male
  Weight: 63.5 kg

DRUGS (11)
  1. AMPYRA (DALFAMPRIDINE) TABLET, 10MG [Suspect]
     Indication: PRODUCT USED FOR UNKNOWN INDICATION
     Route: 048
  2. VITAMIN D3 (COLECALCIFEROL) CAPSULE, 10000IU [Concomitant]
  3. XARELTO (RIVAROXABAN) TABLET, 10 MG [Concomitant]
  4. VITAMIN B12 (CYANOCOBALAMIN) TABLET, 100 PG [Concomitant]
  5. ATENOLOL (ATENOLOL) TABLET, 100 MG [Concomitant]
  6. LANOXIN (DIGOXIN) TABLET, 0.125 MG [Concomitant]
  7. OXYBUTYNIN CHLORIDE (OXYBUTYNIN HYDROCHLORIDE) TABLET, 10 MG [Concomitant]
  8. NEXIUM (ESOMEPRAZOLE MAGNESIUM) CAPSULE, 20 MG [Concomitant]
  9. LEVOTHYROXINE SODIUM (LEVOTHYROXINE SODIUM) TABLET, 100 PG [Concomitant]
  10. BABY ASPIRIN (ACETYLSALICYLIC ACID) CHEWABLE TABLET, 81 MG [Concomitant]
  11. FINASTERIDE (FINASTERIDE) TABLET, 5 MG [Concomitant]

REACTIONS (6)
  - Hip fracture [None]
  - Appendicectomy [None]
  - Weight decreased [None]
  - Fall [None]
  - Muscle atrophy [None]
  - Asthenia [None]
